FAERS Safety Report 9679102 (Version 1)
Quarter: 2013Q4

REPORT INFORMATION
  Report Type: Report from Study
  Country: US (occurrence: US)
  Receive Date: 20131108
  Receipt Date: 20131108
  Transmission Date: 20140711
  Serious: Yes (Hospitalization)
  Sender: FDA-Public Use
  Company Number: US-ABBVIE-13P-163-1165075-00

PATIENT
  Age: 21 Year
  Sex: Female
  Weight: 43.58 kg

DRUGS (6)
  1. HUMIRA [Suspect]
     Indication: CROHN^S DISEASE
     Dates: start: 201106, end: 20131003
  2. HUMIRA [Suspect]
     Dates: start: 20131004
  3. MERCAPTOPURINE [Concomitant]
     Indication: CROHN^S DISEASE
  4. LAMICTAL [Concomitant]
     Indication: BIPOLAR DISORDER
     Dates: start: 2010
  5. CIPROFLOXACIN [Concomitant]
     Indication: CROHN^S DISEASE
  6. FLAGYL [Concomitant]
     Indication: CROHN^S DISEASE

REACTIONS (4)
  - Blood sodium decreased [Recovered/Resolved]
  - Rectal abscess [Recovered/Resolved]
  - Diarrhoea [Recovered/Resolved]
  - Drug effect incomplete [Not Recovered/Not Resolved]
